FAERS Safety Report 10238656 (Version 1)
Quarter: 2014Q2

REPORT INFORMATION
  Report Type: Spontaneous
  Country: FR (occurrence: FR)
  Receive Date: 20140616
  Receipt Date: 20140616
  Transmission Date: 20141212
  Serious: Yes (Life-Threatening, Hospitalization)
  Sender: FDA-Public Use
  Company Number: FR-ELI_LILLY_AND_COMPANY-FR201406003286

PATIENT
  Sex: Male

DRUGS (11)
  1. CYMBALTA [Suspect]
     Indication: PRODUCT USED FOR UNKNOWN INDICATION
     Dosage: UNK UNK, UNKNOWN
     Route: 048
     Dates: end: 20140427
  2. TRINITRINE [Suspect]
     Indication: PRODUCT USED FOR UNKNOWN INDICATION
     Dosage: 5 MG, UNK
     Route: 023
     Dates: end: 20140427
  3. SERESTA [Suspect]
     Indication: PRODUCT USED FOR UNKNOWN INDICATION
     Dosage: 10 MG, TID
     Route: 048
     Dates: end: 20140427
  4. ATORVASTATIN [Suspect]
     Indication: PRODUCT USED FOR UNKNOWN INDICATION
     Dosage: UNK UNK, UNKNOWN
     Route: 048
     Dates: end: 20140427
  5. KARDEGIC [Concomitant]
     Dosage: UNK UNK, UNKNOWN
     Route: 065
     Dates: end: 20140427
  6. KARDEGIC [Concomitant]
     Dosage: UNK
     Dates: start: 20140503
  7. LANTUS [Concomitant]
     Dosage: UNK, UNKNOWN
     Route: 065
  8. TERCIAN                            /00759301/ [Concomitant]
     Dosage: UNK UNK, UNKNOWN
     Route: 065
     Dates: end: 20140427
  9. TERCIAN                            /00759301/ [Concomitant]
     Dosage: UNK UNK, UNKNOWN
     Route: 065
     Dates: start: 20140502
  10. NEBIVOLOL [Concomitant]
     Dosage: UNK UNK, UNKNOWN
     Route: 065
     Dates: end: 20140427
  11. NEBIVOLOL [Concomitant]
     Dosage: UNK UNK, UNKNOWN
     Route: 065
     Dates: start: 20140505

REACTIONS (1)
  - Interstitial lung disease [Recovering/Resolving]
